FAERS Safety Report 5654527-5 (Version None)
Quarter: 2008Q1

REPORT INFORMATION
  Report Type: 
  Country: None (occurrence: None)
  Receive Date: 20080307
  Receipt Date: 20080227
  Transmission Date: 20080703
  Serious: Yes (Hospitalization)
  Sender: FDA-Public Use
  Company Number: SE-WYE-G01172808

PATIENT
  Sex: Female

DRUGS (7)
  1. EFFEXOR [Suspect]
     Indication: DEPRESSION
  2. VAGIFEM [Concomitant]
  3. NORMORIX [Concomitant]
  4. FELODIPINE [Concomitant]
  5. MIRTAZAPINE [Concomitant]
  6. OMEGA-3 TRIGLYCERIDES [Suspect]
     Indication: CARDIAC DISORDER
     Dosage: UNKNOWN
     Route: 048
  7. ZOLPIDEM TARTRATE [Concomitant]

REACTIONS (5)
  - CYSTOCELE [None]
  - HAEMATOMA [None]
  - HAEMORRHAGE [None]
  - RECTAL PROLAPSE [None]
  - RECTOCELE [None]
